FAERS Safety Report 17955935 (Version 3)
Quarter: 2021Q2

REPORT INFORMATION
  Report Type: Report from Study
  Country: BR (occurrence: BR)
  Receive Date: 20200629
  Receipt Date: 20210512
  Transmission Date: 20210717
  Serious: Yes (Other)
  Sender: FDA-Public Use
  Company Number: NVSC2020BR182192

PATIENT
  Age: 62 Year
  Sex: Male

DRUGS (4)
  1. COSENTYX [Suspect]
     Active Substance: SECUKINUMAB
     Dosage: 300 MG, UNKNOWN
     Route: 065
     Dates: start: 20210506
  2. DECADRON [Suspect]
     Active Substance: DEXAMETHASONE
     Indication: CORONAVIRUS INFECTION
     Dosage: UNK
     Route: 065
  3. COSENTYX [Suspect]
     Active Substance: SECUKINUMAB
     Indication: PSORIASIS
     Dosage: 300 MG, UNKNOWN
     Route: 065
     Dates: start: 20180411
  4. COSENTYX [Suspect]
     Active Substance: SECUKINUMAB
     Indication: PSORIATIC ARTHROPATHY
     Dosage: 150 MG, UNKNOWN
     Route: 065

REACTIONS (12)
  - Feeling cold [Not Recovered/Not Resolved]
  - Skin wound [Not Recovered/Not Resolved]
  - Skin haemorrhage [Not Recovered/Not Resolved]
  - Blood pressure decreased [Recovering/Resolving]
  - Arthralgia [Not Recovered/Not Resolved]
  - Pneumonia [Recovering/Resolving]
  - Skin atrophy [Not Recovered/Not Resolved]
  - Coronavirus infection [Recovering/Resolving]
  - Psoriatic arthropathy [Not Recovered/Not Resolved]
  - Skin injury [Not Recovered/Not Resolved]
  - Oxygen saturation abnormal [Recovering/Resolving]
  - Pyrexia [Recovering/Resolving]

NARRATIVE: CASE EVENT DATE: 20210502
